FAERS Safety Report 7673264-9 (Version None)
Quarter: 2011Q3

REPORT INFORMATION
  Report Type: 
  Country: None (occurrence: None)
  Receive Date: 20110810
  Receipt Date: 20110727
  Transmission Date: 20111222
  Serious: Yes (Other)
  Sender: FDA-Public Use
  Company Number: US-PAR PHARMACEUTICAL, INC-2011SCPR003144

PATIENT

DRUGS (3)
  1. MULTIVITAMIN [Concomitant]
     Indication: PRODUCT USED FOR UNKNOWN INDICATION
     Dosage: UNK DAILY
     Route: 065
  2. VITAMIN B12                        /00056201/ [Concomitant]
     Indication: OBESITY SURGERY
     Dosage: UNK, UNKNOWN
     Route: 065
  3. NASCOBAL [Suspect]
     Indication: OBESITY SURGERY
     Dosage: 1 SPR, UNKNOWN
     Route: 045
     Dates: start: 20110629

REACTIONS (2)
  - VISUAL IMPAIRMENT [None]
  - VISION BLURRED [None]
